FAERS Safety Report 6764738-3 (Version None)
Quarter: 2010Q2

REPORT INFORMATION
  Report Type: 
  Country: None (occurrence: None)
  Receive Date: 20100610
  Receipt Date: 20100512
  Transmission Date: 20101027
  Serious: Yes (Other)
  Sender: FDA-Public Use
  Company Number: US-BAYER-201015537BCC

PATIENT
  Age: 45 Year
  Sex: Female
  Weight: 54 kg

DRUGS (1)
  1. ASPIRIN [Suspect]
     Indication: BACK PAIN
     Dosage: TOOK 2 FOREIGN TABLETS THAT WERE IN A EXTRA STRENGTH BAYER ASPIRIN 500MG / BOTTLE COUNT 50S
     Route: 048
     Dates: start: 20100511

REACTIONS (4)
  - COLD SWEAT [None]
  - DIZZINESS [None]
  - NAUSEA [None]
  - TUNNEL VISION [None]
